FAERS Safety Report 5489199-6 (Version None)
Quarter: 2007Q4

REPORT INFORMATION
  Report Type: 
  Country: None (occurrence: None)
  Receive Date: 20071018
  Receipt Date: 20071009
  Transmission Date: 20080405
  Serious: Yes (Other)
  Sender: FDA-Public Use
  Company Number: CO-JNJFOC-20071002910

PATIENT
  Age: 66 Year
  Sex: Female

DRUGS (4)
  1. REMICADE [Suspect]
     Indication: RHEUMATOID ARTHRITIS
     Route: 042
  2. PREDNISOLONE [Concomitant]
  3. LEFLUNOMIDE [Concomitant]
  4. HYDROXYCLOROQUIN [Concomitant]

REACTIONS (1)
  - PULMONARY TUBERCULOSIS [None]
